FAERS Safety Report 4774091-2 (Version None)
Quarter: 2005Q3

REPORT INFORMATION
  Report Type: 
  Country: None (occurrence: None)
  Receive Date: 20050919
  Receipt Date: 20050912
  Transmission Date: 20060218
  Serious: Yes (Hospitalization)
  Sender: FDA-Public Use
  Company Number: 200510091BSV

PATIENT
  Age: 83 Year
  Sex: Female

DRUGS (3)
  1. CIPROFLOXACIN [Suspect]
     Indication: DIARRHOEA
     Dosage: ORAL
     Route: 048
     Dates: start: 20050501, end: 20050526
  2. METRONIDAZOLE [Suspect]
     Indication: DIARRHOEA
     Dosage: 1.5 G, TOTAL DAILY, ORAL
     Route: 048
     Dates: start: 20050519, end: 20050529
  3. WARAN [Concomitant]

REACTIONS (7)
  - COORDINATION ABNORMAL [None]
  - CRANIAL NERVE DISORDER [None]
  - DIFFICULTY IN WALKING [None]
  - DYSPHAGIA [None]
  - SPEECH DISORDER [None]
  - TREMOR [None]
  - VITAMIN B COMPLEX DEFICIENCY [None]
